FAERS Safety Report 17794646 (Version 1)
Quarter: 2020Q2

REPORT INFORMATION
  Report Type: Spontaneous
  Country: GB (occurrence: GB)
  Receive Date: 20200516
  Receipt Date: 20200516
  Transmission Date: 20200714
  Serious: Yes (Other)
  Sender: FDA-Public Use
  Company Number: GB-TEVA-2020-GB-1234670

PATIENT
  Age: 48 Year
  Sex: Male

DRUGS (4)
  1. MIRTAZAPINE. [Suspect]
     Active Substance: MIRTAZAPINE
     Indication: DEPRESSION
     Dosage: 1 DOSAGE FORMS DAILY;  AT NIGHT.
     Route: 048
     Dates: start: 20200107
  2. PROMETHAZINE [Concomitant]
     Active Substance: PROMETHAZINE HYDROCHLORIDE
  3. NAPROXEN. [Concomitant]
     Active Substance: NAPROXEN
  4. LANSOPRAZOLE. [Concomitant]
     Active Substance: LANSOPRAZOLE

REACTIONS (2)
  - Mouth ulceration [Recovered/Resolved]
  - Oral pain [Unknown]

NARRATIVE: CASE EVENT DATE: 20200317
